FAERS Safety Report 9913153 (Version 1)
Quarter: 2014Q1

REPORT INFORMATION
  Report Type: Report from Study
  Country: US (occurrence: US)
  Receive Date: 20140220
  Receipt Date: 20140220
  Transmission Date: 20141002
  Serious: Yes (Death)
  Sender: FDA-Public Use
  Company Number: US-ROCHE-1353277

PATIENT
  Sex: Female

DRUGS (7)
  1. AVASTIN [Suspect]
     Indication: PRODUCT USED FOR UNKNOWN INDICATION
     Route: 065
  2. HERCEPTIN [Suspect]
     Indication: PRODUCT USED FOR UNKNOWN INDICATION
     Dosage: SHE RECEIVED SUBSEQUENT DOSES OF TRASTUZUMAB ON 13/JUL/2010: 352 MG, 05/AUG/2010, 26/AUG/2010, 16/SE
     Route: 042
  3. ZOMETA [Concomitant]
  4. NEUPOGEN [Concomitant]
     Route: 065
  5. DECADRON [Concomitant]
  6. GEMZAR [Concomitant]
  7. ZOFRAN [Concomitant]

REACTIONS (1)
  - Disease progression [Fatal]
